FAERS Safety Report 5467928-5 (Version None)
Quarter: 2007Q3

REPORT INFORMATION
  Report Type: 
  Country: None (occurrence: None)
  Receive Date: 20070820
  Receipt Date: 20070427
  Transmission Date: 20080115
  Serious: No
  Sender: FDA-Public Use
  Company Number: WAES 0702USA01921

PATIENT
  Age: 76 Year
  Sex: Female
  Weight: 81.6475 kg

DRUGS (8)
  1. JANUVIA [Suspect]
     Indication: TYPE 2 DIABETES MELLITUS
     Dosage: 100 MG/DAILY/PO
     Route: 048
     Dates: start: 20070207
  2. ACTOS [Concomitant]
  3. DIABETA [Concomitant]
  4. DIMENE [Concomitant]
  5. VYTORIN [Concomitant]
  6. ZEBETA [Concomitant]
  7. [THERAPY UNSPECIFIED] [Concomitant]
  8. METFORMIN [Concomitant]

REACTIONS (2)
  - MUSCLE SPASMS [None]
  - PHARYNGOLARYNGEAL PAIN [None]
